FAERS Safety Report 22020804 (Version 1)
Quarter: 2023Q1

REPORT INFORMATION
  Report Type: Spontaneous
  Country: US (occurrence: US)
  Receive Date: 20230222
  Receipt Date: 20230222
  Transmission Date: 20230418
  Serious: Yes (Other)
  Sender: FDA-Public Use
  Company Number: US-BAYER-2023A018204

PATIENT
  Age: 27 Year
  Sex: Female

DRUGS (4)
  1. ASPIRIN [Suspect]
     Active Substance: ASPIRIN
     Indication: Systemic lupus erythematosus
  2. DEXAMETHASONE [Concomitant]
     Active Substance: DEXAMETHASONE
  3. CHLOROQUINE [Concomitant]
     Active Substance: CHLOROQUINE
  4. ENOXAPARIN [Concomitant]
     Active Substance: ENOXAPARIN

REACTIONS (4)
  - Premature labour [None]
  - Off label use [None]
  - Maternal exposure during pregnancy [None]
  - Contraindicated product administered [None]
